FAERS Safety Report 9626476 (Version 1)
Quarter: 2013Q4

REPORT INFORMATION
  Report Type: Spontaneous
  Country: US (occurrence: None)
  Receive Date: 20131015
  Receipt Date: 20131015
  Transmission Date: 20140711
  Serious: Yes (Life-Threatening, Hospitalization, Disabling)
  Sender: FDA-Public Use
  Company Number: None

PATIENT
  Age: 19 Year
  Sex: Female

DRUGS (3)
  1. KARIVA [Suspect]
     Indication: ACNE
     Route: 048
  2. KARIVA [Suspect]
     Indication: DYSMENORRHOEA
     Route: 048
  3. KARIVA [Suspect]
     Indication: CONTRACEPTION
     Route: 048

REACTIONS (1)
  - Transient ischaemic attack [None]
